FAERS Safety Report 15579843 (Version 1)
Quarter: 2018Q4

REPORT INFORMATION
  Report Type: Spontaneous
  Country: US (occurrence: US)
  Receive Date: 20181102
  Receipt Date: 20181102
  Transmission Date: 20190205
  Serious: No
  Sender: FDA-Public Use
  Company Number: None

PATIENT
  Sex: Female

DRUGS (1)
  1. CHAPICE ORIGINAL SPF 4 LIP BALM [Suspect]
     Active Substance: PADIMATE O\PETROLATUM
     Indication: CHAPPED LIPS
     Dosage: ?          QUANTITY:1 TOPICAL;OTHER ROUTE:ON THE LIPS?
     Route: 061
     Dates: end: 20180815

REACTIONS (1)
  - Hypersensitivity [None]

NARRATIVE: CASE EVENT DATE: 20180801
